FAERS Safety Report 13138896 (Version 1)
Quarter: 2017Q1

REPORT INFORMATION
  Report Type: Spontaneous
  Country: US (occurrence: US)
  Receive Date: 20170123
  Receipt Date: 20170123
  Transmission Date: 20170428
  Serious: No
  Sender: FDA-Public Use
  Company Number: US-PFIZER INC-2017025177

PATIENT
  Age: 34 Year
  Sex: Male
  Weight: 93.89 kg

DRUGS (1)
  1. GABAPENTIN. [Suspect]
     Active Substance: GABAPENTIN
     Indication: PAIN
     Dosage: 100 MG, 2X/DAY (FOR TWO OR THREE DAY)

REACTIONS (1)
  - Drug ineffective for unapproved indication [Not Recovered/Not Resolved]
